FAERS Safety Report 8837960 (Version 1)
Quarter: 2012Q4

REPORT INFORMATION
  Report Type: 
  Country: US (occurrence: US)
  Receive Date: 20121012
  Receipt Date: 20121012
  Transmission Date: 20130627
  Serious: Yes (Other)
  Sender: FDA-Public Use
  Company Number: US-ROCHE-1110865

PATIENT
  Sex: Male

DRUGS (2)
  1. NUTROPIN AQ [Suspect]
     Indication: RENAL FAILURE CHRONIC
     Dosage: 35/mg/kg or .82mg 6/W
     Route: 065
     Dates: start: 199709
  2. NUTROPIN AQ [Suspect]
     Indication: AZOTAEMIA

REACTIONS (2)
  - Malaise [Unknown]
  - No therapeutic response [Unknown]
